FAERS Safety Report 9110514 (Version 1)
Quarter: 2013Q1

REPORT INFORMATION
  Report Type: Spontaneous
  Country: GB (occurrence: GB)
  Receive Date: 20130222
  Receipt Date: 20130222
  Transmission Date: 20140127
  Serious: Yes (Hospitalization)
  Sender: FDA-Public Use
  Company Number: GB-BRACCO-000682

PATIENT
  Age: 63 Year
  Sex: Male
  Weight: 140 kg

DRUGS (18)
  1. LEVOTHYROXINE [Concomitant]
     Indication: HYPOTHYROIDISM
     Route: 048
  2. CARBOCISTEINE [Concomitant]
     Indication: CHRONIC OBSTRUCTIVE PULMONARY DISEASE
     Route: 048
  3. DIGOXIN [Concomitant]
     Indication: ATRIAL FIBRILLATION
     Route: 048
  4. GTN [Concomitant]
     Indication: MYOCARDIAL ISCHAEMIA
     Dosage: AS NEEDED
     Route: 048
  5. ISMN [Concomitant]
     Indication: MYOCARDIAL ISCHAEMIA
     Route: 048
  6. NIOPAM [Suspect]
     Indication: ANGIOGRAM
     Route: 042
     Dates: start: 20121128, end: 20121128
  7. EPLERENONE [Concomitant]
     Indication: CARDIAC FAILURE CHRONIC
     Route: 048
  8. LEVETIRACETAM [Concomitant]
     Indication: EPILEPSY
     Route: 048
  9. BUMETANIDE [Concomitant]
     Indication: CARDIAC FAILURE CHRONIC
     Route: 048
  10. GLICLAZIDE [Concomitant]
     Route: 048
  11. FERROUS FUMARATE [Concomitant]
     Indication: ANAEMIA
     Route: 048
  12. BISOPROLOL [Concomitant]
     Indication: ATRIAL FIBRILLATION
     Route: 048
  13. SIMVASTATIN [Concomitant]
     Indication: BLOOD CHOLESTEROL INCREASED
     Route: 048
  14. LIRAGLUTIDE [Concomitant]
     Route: 058
  15. MOMETASONE FUROATE [Concomitant]
     Indication: RHINITIS
     Route: 045
  16. RAMIPRIL [Concomitant]
     Indication: CARDIAC FAILURE CHRONIC
     Route: 048
  17. COUMADIN [Concomitant]
     Indication: ATRIAL FIBRILLATION
     Route: 048
  18. RANITIDINE [Concomitant]
     Indication: GASTROOESOPHAGEAL REFLUX DISEASE
     Route: 048

REACTIONS (3)
  - Nephropathy toxic [Recovered/Resolved]
  - Renal failure acute [Recovered/Resolved]
  - Blood creatinine increased [Recovered/Resolved]
